FAERS Safety Report 12766624 (Version 5)
Quarter: 2016Q4

REPORT INFORMATION
  Report Type: Report from Study
  Country: US (occurrence: US)
  Receive Date: 20160921
  Receipt Date: 20161031
  Transmission Date: 20170207
  Serious: Yes (Hospitalization, Other)
  Sender: FDA-Public Use
  Company Number: US-GILEAD-2016-0231423

PATIENT
  Age: 64 Year
  Sex: Male

DRUGS (8)
  1. REVATIO [Concomitant]
     Active Substance: SILDENAFIL CITRATE
  2. COUMADIN [Concomitant]
     Active Substance: WARFARIN SODIUM
  3. AMBRISENTAN [Suspect]
     Active Substance: AMBRISENTAN
     Indication: PRODUCT USED FOR UNKNOWN INDICATION
     Dosage: 10 MG, QD
     Route: 065
     Dates: start: 20121214
  4. VELETRI [Concomitant]
     Active Substance: EPOPROSTENOL
  5. UPTRAVI [Concomitant]
     Active Substance: SELEXIPAG
  6. FLOLAN [Concomitant]
     Active Substance: EPOPROSTENOL SODIUM
  7. TYVASO [Concomitant]
     Active Substance: TREPROSTINIL
  8. WARFARIN [Concomitant]
     Active Substance: WARFARIN

REACTIONS (8)
  - Fluid retention [Unknown]
  - Pain in jaw [Not Recovered/Not Resolved]
  - Asthenia [Unknown]
  - Dizziness [Unknown]
  - Burning sensation [Unknown]
  - Cardiac failure [Unknown]
  - Pulmonary arterial hypertension [Unknown]
  - Pain in extremity [Not Recovered/Not Resolved]
